FAERS Safety Report 11048067 (Version 1)
Quarter: 2015Q2

REPORT INFORMATION
  Report Type: Spontaneous
  Country: US (occurrence: None)
  Receive Date: 20150417
  Receipt Date: 20150417
  Transmission Date: 20150821
  Serious: No
  Sender: FDA-Public Use
  Company Number: None

PATIENT
  Age: 27 Year
  Sex: Female
  Weight: 63.5 kg

DRUGS (6)
  1. MELATONIN [Concomitant]
     Active Substance: MELATONIN
  2. TYLENOL [Concomitant]
     Active Substance: ACETAMINOPHEN
  3. MIDOL [Concomitant]
     Active Substance: IBUPROFEN
  4. LATUDA [Suspect]
     Active Substance: LURASIDONE HYDROCHLORIDE
     Indication: ABNORMAL BEHAVIOUR
     Route: 048
  5. LORAZEPAM. [Concomitant]
     Active Substance: LORAZEPAM
  6. IBUPROPHIN [Concomitant]

REACTIONS (7)
  - Seizure [None]
  - Tongue movement disturbance [None]
  - Gait disturbance [None]
  - Muscle twitching [None]
  - Dysstasia [None]
  - Musculoskeletal stiffness [None]
  - Delusional perception [None]

NARRATIVE: CASE EVENT DATE: 20150402
